FAERS Safety Report 9542462 (Version 1)
Quarter: 2013Q3

REPORT INFORMATION
  Report Type: Spontaneous
  Country: AU (occurrence: AU)
  Receive Date: 20130923
  Receipt Date: 20130923
  Transmission Date: 20140515
  Serious: Yes (Death)
  Sender: FDA-Public Use
  Company Number: AU-PFIZER INC-2013270896

PATIENT
  Age: 57 Year
  Sex: Male

DRUGS (1)
  1. MS CONTIN [Suspect]
     Indication: PAIN
     Dosage: UNK
     Route: 065
     Dates: start: 20090525, end: 20090528

REACTIONS (3)
  - Incorrect dose administered [Fatal]
  - Drug prescribing error [Fatal]
  - Pain [Unknown]
